FAERS Safety Report 5698594-1 (Version None)
Quarter: 2008Q2

REPORT INFORMATION
  Report Type: 
  Country: None (occurrence: None)
  Receive Date: 20080408
  Receipt Date: 20070112
  Transmission Date: 20081010
  Serious: Yes (Other)
  Sender: FDA-Public Use
  Company Number: US-BAYER-US-2006-032412

PATIENT
  Age: 47 Year
  Sex: Female
  Weight: 79 kg

DRUGS (3)
  1. CLIMARA [Suspect]
     Indication: MENOPAUSAL SYMPTOMS
     Route: 062
     Dates: start: 20030601, end: 20060201
  2. CLIMARA [Suspect]
     Route: 062
     Dates: start: 20060201
  3. PROGESTOGENS [Concomitant]

REACTIONS (1)
  - HAEMANGIOMA OF LIVER [None]
